FAERS Safety Report 25121846 (Version 2)
Quarter: 2025Q2

REPORT INFORMATION
  Report Type: Report from Study
  Country: US (occurrence: US)
  Receive Date: 20250326
  Receipt Date: 20250508
  Transmission Date: 20250716
  Serious: Yes (Hospitalization, Other)
  Sender: ABBVIE
  Company Number: US-ABBVIE-6190010

PATIENT
  Age: 77 Year
  Sex: Female
  Weight: 45.359 kg

DRUGS (1)
  1. SKYRIZI [Suspect]
     Active Substance: RISANKIZUMAB-RZAA
     Indication: Psoriasis
     Dosage: FORM STRENGTH 150 MG
     Route: 058
     Dates: start: 20250215

REACTIONS (5)
  - Large intestinal obstruction [Not Recovered/Not Resolved]
  - Gastric dilatation [Not Recovered/Not Resolved]
  - Weight decreased [Not Recovered/Not Resolved]
  - Computerised tomogram abnormal [Not Recovered/Not Resolved]
  - Cholecystectomy [Recovering/Resolving]

NARRATIVE: CASE EVENT DATE: 20250101
